FAERS Safety Report 9980266 (Version 1)
Quarter: 2014Q1

REPORT INFORMATION
  Report Type: Report from Study
  Country: US (occurrence: US)
  Receive Date: 20140307
  Receipt Date: 20140307
  Transmission Date: 20141002
  Serious: No
  Sender: FDA-Public Use
  Company Number: US-ABBVIE-13P-163-1174830-00

PATIENT
  Age: 60 Year
  Sex: Female

DRUGS (6)
  1. HUMIRA [Suspect]
     Indication: CROHN^S DISEASE
     Dates: start: 20130930
  2. BETA-BLOCKER [Concomitant]
     Indication: PRODUCT USED FOR UNKNOWN INDICATION
  3. LISINOPRIL/HCTZ [Concomitant]
     Indication: HYPERTENSION
     Dosage: 20/12.5MG DAILY
  4. SYNTHROID [Concomitant]
     Indication: THYROID DISORDER
  5. NEXIUM [Concomitant]
     Indication: GASTROOESOPHAGEAL REFLUX DISEASE
  6. LIALDA [Concomitant]
     Indication: CROHN^S DISEASE

REACTIONS (1)
  - Injection site pain [Recovered/Resolved]
